FAERS Safety Report 10236407 (Version 1)
Quarter: 2014Q2

REPORT INFORMATION
  Report Type: Spontaneous
  Country: JP (occurrence: JP)
  Receive Date: 20140613
  Receipt Date: 20140613
  Transmission Date: 20141212
  Serious: Yes (Hospitalization)
  Sender: FDA-Public Use
  Company Number: JP-WATSON-2014-13251

PATIENT
  Age: 54 Year
  Sex: Female

DRUGS (1)
  1. HYDROXYZINE PAMOATE (WATSON LABORATORIES) [Suspect]
     Indication: RASH
     Dosage: UNKNOWN
     Route: 065

REACTIONS (2)
  - Cerebral vasoconstriction [Recovered/Resolved]
  - Subarachnoid haemorrhage [Recovered/Resolved]
